FAERS Safety Report 6716854-X (Version None)
Quarter: 2010Q2

REPORT INFORMATION
  Report Type: 
  Country: None (occurrence: None)
  Receive Date: 20100510
  Receipt Date: 20100505
  Transmission Date: 20101027
  Serious: Yes (Life-Threatening)
  Sender: FDA-Public Use
  Company Number: ES-BAYER-200918047GPV

PATIENT
  Age: 72 Year
  Sex: Male
  Weight: 63 kg

DRUGS (13)
  1. SORAFENIB [Suspect]
     Indication: NON-SMALL CELL LUNG CANCER
     Dosage: TOTAL DAILY DOSE: 800 MG
     Route: 048
     Dates: start: 20081218, end: 20090108
  2. CISPLATIN [Suspect]
     Indication: NON-SMALL CELL LUNG CANCER
     Dosage: AS USED: 126.75 MG
     Route: 042
     Dates: start: 20081218, end: 20081218
  3. GEMCITABINE HCL [Suspect]
     Indication: NON-SMALL CELL LUNG CANCER
     Dosage: AS USED: 2028 MG
     Route: 042
     Dates: start: 20081218, end: 20081218
  4. GEMCITABINE HCL [Suspect]
     Dosage: AS USED: 2028 MG
     Route: 042
     Dates: start: 20081226, end: 20081226
  5. SALMETEROL [Concomitant]
     Indication: CHRONIC OBSTRUCTIVE PULMONARY DISEASE
     Route: 055
     Dates: start: 20080101
  6. OMEPRAZOLE [Concomitant]
     Indication: PROPHYLAXIS AGAINST GASTROINTESTINAL ULCER
     Route: 048
     Dates: start: 20081218
  7. OMEPRAZOLE [Concomitant]
     Route: 048
     Dates: start: 20080101, end: 20081217
  8. ENANTYUM [Concomitant]
     Indication: PAIN
     Route: 048
     Dates: start: 20080101
  9. FLUMIL [Concomitant]
     Indication: NASOPHARYNGITIS
     Route: 048
     Dates: start: 20081126, end: 20081226
  10. CODEINE SUL TAB [Concomitant]
     Indication: NASOPHARYNGITIS
     Route: 048
     Dates: start: 20081126, end: 20081202
  11. FLUCONAZOLE [Concomitant]
     Indication: MUCOSAL INFLAMMATION
     Route: 048
     Dates: start: 20081126, end: 20081202
  12. DOXIUM FORTE [Concomitant]
     Indication: CEREBROVASCULAR ACCIDENT PROPHYLAXIS
     Route: 048
     Dates: start: 20081218
  13. PENTOXIFILINA [Concomitant]
     Indication: VASODILATATION
     Route: 048
     Dates: start: 20081218

REACTIONS (1)
  - THROMBOSIS [None]
